FAERS Safety Report 7357425-4 (Version None)
Quarter: 2011Q1

REPORT INFORMATION
  Report Type: 
  Country: None (occurrence: None)
  Receive Date: 20110308
  Receipt Date: 20110221
  Transmission Date: 20110831
  Serious: Yes (Life-Threatening, Other)
  Sender: FDA-Public Use
  Company Number: 2011P1004552

PATIENT
  Age: 25 Year
  Sex: Male

DRUGS (3)
  1. FENTANYL [Suspect]
     Indication: ANAESTHESIA
     Dosage: 0.25 MG
  2. HYDROMORPHONE HCL [Suspect]
     Indication: ANAESTHESIA
     Dosage: 0.5 MG
  3. NONDEPOLARIZING MUSCLE RELAXANT (NO PREF. NAME) [Suspect]
     Indication: ANAESTHESIA

REACTIONS (5)
  - POST PROCEDURAL COMPLICATION [None]
  - STRIDOR [None]
  - UPPER AIRWAY OBSTRUCTION [None]
  - LARYNGOSPASM [None]
  - PULMONARY OEDEMA [None]
